FAERS Safety Report 24964993 (Version 2)
Quarter: 2025Q4

REPORT INFORMATION
  Report Type: Report from Study
  Country: US (occurrence: US)
  Receive Date: 20250213
  Receipt Date: 20251222
  Transmission Date: 20260118
  Serious: Yes (Other)
  Sender: PFIZER
  Company Number: US-PFIZER INC-202500031353

PATIENT
  Age: 70 Year
  Sex: Female
  Weight: 95.6 kg

DRUGS (2)
  1. IBRANCE [Suspect]
     Active Substance: PALBOCICLIB
     Dosage: 100 MG, CYCLIC (100MG ONE TIME DAILY FOR 21 DAYS ON AND 7 DAYS OFF)
     Dates: start: 20241205
  2. LETROZOLE [Concomitant]
     Active Substance: LETROZOLE
     Dosage: 2.5 MG P.O. DAILY
     Route: 048
     Dates: start: 20241113

REACTIONS (1)
  - Diabetes mellitus [Unknown]
